FAERS Safety Report 4556595-0 (Version None)
Quarter: 2005Q1

REPORT INFORMATION
  Report Type: 
  Country: None (occurrence: None)
  Receive Date: 20050118
  Receipt Date: 20050104
  Transmission Date: 20050727
  Serious: Yes (Hospitalization)
  Sender: FDA-Public Use
  Company Number: 2004240689US

PATIENT
  Age: 48 Year
  Sex: Male
  Weight: 55.7924 kg

DRUGS (8)
  1. IRINOTECAN HCL [Suspect]
     Indication: GLIOBLASTOMA MULTIFORME
     Dosage: 313.75 MG (CYCLIC), INTRAVENOUS
     Route: 042
     Dates: start: 20040815, end: 20041006
  2. THALIDOMIDE (THALIDOMIDE) [Suspect]
     Indication: GLIOBLASTOMA MULTIFORME
     Dosage: 400 MG, ORAL
     Route: 048
     Dates: start: 20041001, end: 20041013
  3. LEVETIRACETAM [Concomitant]
  4. VALPROATE SODIUM [Concomitant]
  5. DEXAMETHASONE [Concomitant]
  6. ESOMEPRAZOLE (ESOMEPRAZOLE) [Concomitant]
  7. LORAZEPAM [Concomitant]
  8. THIAMINE HCL [Concomitant]

REACTIONS (2)
  - CONVULSION [None]
  - TREATMENT NONCOMPLIANCE [None]
